FAERS Safety Report 18636087 (Version 1)
Quarter: 2020Q4

REPORT INFORMATION
  Report Type: Spontaneous
  Country: HU (occurrence: HU)
  Receive Date: 20201218
  Receipt Date: 20201218
  Transmission Date: 20210114
  Serious: Yes (Other)
  Sender: FDA-Public Use
  Company Number: HU-IPSEN BIOPHARMACEUTICALS, INC.-2020-25443

PATIENT
  Age: 56 Year
  Sex: Male

DRUGS (4)
  1. METOTHYRIN [Concomitant]
     Active Substance: METHIMAZOLE
     Indication: HYPERTHYROIDISM
     Dosage: UNK
     Route: 048
     Dates: start: 2013, end: 2013
  2. SOMATULINE AUTOGEL [Suspect]
     Active Substance: LANREOTIDE ACETATE
     Indication: NEUROENDOCRINE CARCINOMA METASTATIC
     Route: 058
     Dates: start: 2014
  3. INTERFERON [Concomitant]
     Active Substance: INTERFERON
     Indication: NEUROENDOCRINE TUMOUR OF THE LUNG METASTATIC
     Route: 065
     Dates: start: 201402, end: 2014
  4. OCTREOTIDE. [Concomitant]
     Active Substance: OCTREOTIDE
     Indication: NEUROENDOCRINE TUMOUR OF THE LUNG METASTATIC
     Route: 030
     Dates: start: 201111, end: 2014

REACTIONS (7)
  - Tachycardia [Recovered/Resolved]
  - Pain in extremity [Recovered/Resolved]
  - Insomnia [Recovering/Resolving]
  - Blood sodium decreased [Recovered/Resolved]
  - Cholelithiasis [Recovered/Resolved]
  - Blood glucose increased [Unknown]
  - Cholecystitis acute [Recovered/Resolved]

NARRATIVE: CASE EVENT DATE: 2016
